FAERS Safety Report 5367739-5 (Version None)
Quarter: 2007Q2

REPORT INFORMATION
  Report Type: 
  Country: None (occurrence: None)
  Receive Date: 20070622
  Receipt Date: 20070223
  Transmission Date: 20071010
  Serious: No
  Sender: FDA-Public Use
  Company Number: US-ASTRAZENECA-2007UW03614

PATIENT
  Age: 62 Year
  Sex: Female
  Weight: 68 kg

DRUGS (6)
  1. PULMICORT [Suspect]
     Indication: ASTHMA
     Route: 055
  2. PROVENTIL-HFA [Concomitant]
  3. ATENOLOL [Concomitant]
  4. NASONEX [Concomitant]
  5. LOTREL [Concomitant]
  6. LIPITOR [Concomitant]

REACTIONS (1)
  - WHEEZING [None]
